FAERS Safety Report 7618056-1 (Version None)
Quarter: 2011Q3

REPORT INFORMATION
  Report Type: 
  Country: None (occurrence: None)
  Receive Date: 20110718
  Receipt Date: 20110708
  Transmission Date: 20111222
  Serious: Yes (Hospitalization)
  Sender: FDA-Public Use
  Company Number: US-US-EMD SERONO, INC.-7070493

PATIENT
  Sex: Female

DRUGS (4)
  1. WATER PILL [Concomitant]
     Dates: end: 20110501
  2. REBIF [Suspect]
     Indication: PRODUCT USED FOR UNKNOWN INDICATION
     Route: 058
     Dates: start: 20110310
  3. BLOOD PRESSURE MEDICATION [Concomitant]
     Indication: BLOOD PRESSURE
     Dates: end: 20110501
  4. IBUPROFEN [Concomitant]
     Dates: end: 20110501

REACTIONS (2)
  - INFLUENZA LIKE ILLNESS [None]
  - HYPERGLYCAEMIA [None]
